FAERS Safety Report 15455520 (Version 1)
Quarter: 2018Q4

REPORT INFORMATION
  Report Type: Report from Study
  Country: CA (occurrence: CA)
  Receive Date: 20181002
  Receipt Date: 20181002
  Transmission Date: 20190204
  Serious: Yes (Other)
  Sender: FDA-Public Use
  Company Number: CA-GLAXOSMITHKLINE-CA2018GSK171645

PATIENT
  Sex: Female

DRUGS (5)
  1. SALBUTAMOL SULPHATE [Suspect]
     Active Substance: ALBUTEROL SULFATE
     Indication: ASTHMA
     Dosage: UNK, PRN
  2. ZOSTAVAX [Concomitant]
     Active Substance: VARICELLA-ZOSTER VIRUS STRAIN OKA/MERCK LIVE ANTIGEN
     Indication: PRODUCT USED FOR UNKNOWN INDICATION
  3. NUCALA [Suspect]
     Active Substance: MEPOLIZUMAB
     Indication: ASTHMA
     Dosage: 100 MG, Z
     Route: 042
     Dates: start: 20180122
  4. PREDNISONE. [Suspect]
     Active Substance: PREDNISONE
     Indication: PRODUCT USED FOR UNKNOWN INDICATION
     Dosage: UNK
     Route: 048
  5. SYMBICORT [Suspect]
     Active Substance: BUDESONIDE\FORMOTEROL FUMARATE DIHYDRATE
     Indication: PRODUCT USED FOR UNKNOWN INDICATION
     Dosage: 2 PUFF(S), TID

REACTIONS (32)
  - Sarcoidosis [Unknown]
  - Asthma [Unknown]
  - Sputum discoloured [Unknown]
  - Wheezing [Recovered/Resolved]
  - Dyspnoea exertional [Unknown]
  - Fatigue [Unknown]
  - Cough [Recovered/Resolved]
  - Blood count abnormal [Unknown]
  - Dyspnoea [Unknown]
  - Nasal congestion [Unknown]
  - Chronic spontaneous urticaria [Unknown]
  - Rash pustular [Unknown]
  - Cellulitis [Unknown]
  - Joint stiffness [Unknown]
  - Upper-airway cough syndrome [Unknown]
  - Nasal disorder [Unknown]
  - Pulmonary function test decreased [Unknown]
  - Chills [Unknown]
  - Respiratory symptom [Unknown]
  - Drug effect incomplete [Unknown]
  - Rash pruritic [Unknown]
  - Obstructive airways disorder [Unknown]
  - Tinnitus [Not Recovered/Not Resolved]
  - Tooth infection [Unknown]
  - Rash generalised [Recovered/Resolved]
  - Ill-defined disorder [Unknown]
  - Productive cough [Unknown]
  - Respiratory tract infection [Unknown]
  - Pain [Unknown]
  - Nausea [Unknown]
  - Nasopharyngitis [Unknown]
  - Viral infection [Unknown]
